FAERS Safety Report 7356219-3 (Version None)
Quarter: 2011Q1

REPORT INFORMATION
  Report Type: 
  Country: None (occurrence: None)
  Receive Date: 20110316
  Receipt Date: 20100817
  Transmission Date: 20110831
  Serious: No
  Sender: FDA-Public Use
  Company Number: US-BAYER-201033930NA

PATIENT
  Sex: Female

DRUGS (1)
  1. MIRENA [Suspect]
     Indication: CONTRACEPTION
     Dosage: 20 MCG/24HR, CONT
     Route: 015
     Dates: start: 20100602, end: 20100713

REACTIONS (4)
  - ACNE [None]
  - MENORRHAGIA [None]
  - ABDOMINAL PAIN LOWER [None]
  - AMENORRHOEA [None]
